FAERS Safety Report 13314859 (Version 1)
Quarter: 2017Q1

REPORT INFORMATION
  Report Type: Report from Study
  Country: FR (occurrence: FR)
  Receive Date: 20170309
  Receipt Date: 20170309
  Transmission Date: 20170428
  Serious: Yes (Hospitalization, Other)
  Sender: FDA-Public Use
  Company Number: FR-BRISTOL-MYERS SQUIBB COMPANY-BMS-2017-017545

PATIENT
  Age: 68 Year
  Sex: Male

DRUGS (2)
  1. NIVOLUMAB [Suspect]
     Active Substance: NIVOLUMAB
     Indication: NEOPLASM
     Dosage: 155 MG, UNK
     Route: 042
     Dates: start: 20170227, end: 20170227
  2. LIRILUMAB [Suspect]
     Active Substance: LIRILUMAB
     Indication: NEOPLASM
     Dosage: 155 MG, UNK
     Route: 042
     Dates: start: 20170227, end: 20170227

REACTIONS (1)
  - Febrile neutropenia [Recovering/Resolving]

NARRATIVE: CASE EVENT DATE: 20170228
